FAERS Safety Report 14370678 (Version 4)
Quarter: 2018Q4

REPORT INFORMATION
  Report Type: Spontaneous
  Country: US (occurrence: US)
  Receive Date: 20180110
  Receipt Date: 20181102
  Transmission Date: 20190204
  Serious: Yes (Other)
  Sender: FDA-Public Use
  Company Number: US-PFIZER INC-2018005415

PATIENT
  Age: 64 Year
  Sex: Female

DRUGS (4)
  1. IBRANCE [Suspect]
     Active Substance: PALBOCICLIB
     Dosage: 75 MG, CYCLIC (ON21 DAYS THEN OFF 7)
     Route: 048
     Dates: start: 20171020
  2. IBRANCE [Suspect]
     Active Substance: PALBOCICLIB
     Dosage: 100 MG, CYCLIC (ON 21/OFF 7 DAYS)
     Route: 048
     Dates: start: 20171020
  3. IBRANCE [Suspect]
     Active Substance: PALBOCICLIB
     Dosage: 75 MG, CYCLIC, (DAYS 1-21)
     Route: 048
     Dates: start: 20170916
  4. IBRANCE [Suspect]
     Active Substance: PALBOCICLIB
     Indication: BREAST CANCER
     Dosage: 125 MG, 1X/DAY
     Route: 048
     Dates: start: 20170908

REACTIONS (7)
  - Stomatitis [Unknown]
  - White blood cell count increased [Unknown]
  - Alopecia [Unknown]
  - Fatigue [Recovering/Resolving]
  - Dry skin [Unknown]
  - White blood cell count decreased [Unknown]
  - Blood count abnormal [Recovered/Resolved]

NARRATIVE: CASE EVENT DATE: 20171020
